FAERS Safety Report 23072551 (Version 1)
Quarter: 2023Q4

REPORT INFORMATION
  Report Type: Spontaneous
  Country: CA (occurrence: CA)
  Receive Date: 20231017
  Receipt Date: 20231017
  Transmission Date: 20240110
  Serious: Yes (Life-Threatening, Hospitalization, Other)
  Sender: FDA-Public Use
  Company Number: CA-009507513-2310CAN003922

PATIENT
  Age: 51 Year
  Sex: Female

DRUGS (19)
  1. BRIDION [Suspect]
     Active Substance: SUGAMMADEX
     Indication: Neuromuscular blockade reversal
     Dosage: 2ML + 5ML SINGLE USE VIALS, 200 MILLIGRAM, ONCE
     Route: 042
  2. ACETAMINOPHEN [Concomitant]
     Active Substance: ACETAMINOPHEN
  3. ACETAMINOPHEN\CAFFEINE\CODEINE PHOSPHATE [Concomitant]
     Active Substance: ACETAMINOPHEN\CAFFEINE\CODEINE PHOSPHATE
  4. BASAGLAR [Concomitant]
     Active Substance: INSULIN GLARGINE
  5. BUPROPION [Concomitant]
     Active Substance: BUPROPION
  6. CLINDAMYCIN [Concomitant]
     Active Substance: CLINDAMYCIN
  7. CLONAZEPAM [Concomitant]
     Active Substance: CLONAZEPAM
  8. CODEINE [Concomitant]
     Active Substance: CODEINE
  9. DESVENLAFAXINE [Concomitant]
     Active Substance: DESVENLAFAXINE
  10. DEXAMETHASONE [Concomitant]
     Active Substance: DEXAMETHASONE
  11. ENOXAPARIN [Concomitant]
     Active Substance: ENOXAPARIN
  12. FERROUS FUMARATE [Concomitant]
     Active Substance: FERROUS FUMARATE
  13. HUMULIN R [Concomitant]
     Active Substance: INSULIN HUMAN
  14. KETOROLAC [Concomitant]
     Active Substance: KETOROLAC TROMETHAMINE
  15. MELATONIN [Concomitant]
     Active Substance: MELATONIN
  16. PREGABALIN [Concomitant]
     Active Substance: PREGABALIN
  17. QUETIAPINE [Concomitant]
     Active Substance: QUETIAPINE
  18. RABEPRAZOLE [Concomitant]
     Active Substance: RABEPRAZOLE
  19. TRESIBA [Concomitant]
     Active Substance: INSULIN DEGLUDEC

REACTIONS (5)
  - Angioedema [Recovering/Resolving]
  - Blood pressure systolic decreased [Recovering/Resolving]
  - Endotracheal intubation [Recovering/Resolving]
  - Intensive care [Recovering/Resolving]
  - Mechanical ventilation [Recovering/Resolving]
